FAERS Safety Report 8805592 (Version 1)
Quarter: 2012Q4

REPORT INFORMATION
  Report Type: 
  Country: US (occurrence: US)
  Receive Date: 20120924
  Receipt Date: 20120924
  Transmission Date: 20130627
  Serious: No
  Sender: FDA-Public Use
  Company Number: US-B.I. PHARMACEUTICALS,INC./RIDGEFIELD-2012-BP-22724BP

PATIENT
  Age: 72 Year
  Sex: Male
  Weight: 69 kg

DRUGS (3)
  1. VIRAMUNE [Suspect]
     Indication: HIV INFECTION
     Dosage: 400 mg
     Route: 048
     Dates: start: 1996
  2. ZIAGEN [Concomitant]
     Indication: HIV INFECTION
     Dosage: 400 mg
     Route: 048
     Dates: start: 1996
  3. ISENTRIS [Concomitant]
     Indication: HIV INFECTION
     Dosage: 400 mg
     Route: 048
     Dates: start: 1996

REACTIONS (1)
  - Sweat discolouration [Not Recovered/Not Resolved]
